FAERS Safety Report 6253089-1 (Version None)
Quarter: 2009Q3

REPORT INFORMATION
  Report Type: 
  Country: None (occurrence: None)
  Receive Date: 20090701
  Receipt Date: 20090622
  Transmission Date: 20100115
  Serious: Yes (Other)
  Sender: FDA-Public Use
  Company Number: PHHY2008VE13038

PATIENT

DRUGS (2)
  1. VOLTAREN [Suspect]
     Dosage: 50 MG, BID
     Route: 048
  2. CATAFLAM [Suspect]
     Dosage: UNK

REACTIONS (2)
  - GASTRIC HAEMORRHAGE [None]
  - VIRAL INFECTION [None]
